FAERS Safety Report 4382401-3 (Version None)
Quarter: 2004Q2

REPORT INFORMATION
  Report Type: 
  Country: None (occurrence: None)
  Receive Date: 20040617
  Receipt Date: 20040607
  Transmission Date: 20050107
  Serious: Yes (Hospitalization)
  Sender: FDA-Public Use
  Company Number: 2004US000649

PATIENT
  Age: 59 Year
  Sex: Female

DRUGS (1)
  1. PROGRAF [Suspect]
     Indication: LIVER TRANSPLANT

REACTIONS (5)
  - AORTIC STENOSIS [None]
  - CORONARY ARTERY DISEASE [None]
  - DYSPNOEA EXERTIONAL [None]
  - PULMONARY HYPERTENSION [None]
  - PYREXIA [None]
